FAERS Safety Report 18038605 (Version 4)
Quarter: 2021Q4

REPORT INFORMATION
  Report Type: Spontaneous
  Country: US (occurrence: US)
  Receive Date: 20200717
  Receipt Date: 20211102
  Transmission Date: 20220303
  Serious: No
  Sender: FDA-Public Use
  Company Number: US-PFIZER INC-2020188926

PATIENT
  Age: 31 Year
  Sex: Female

DRUGS (1)
  1. LYRICA [Suspect]
     Active Substance: PREGABALIN
     Dosage: 100 MG

REACTIONS (3)
  - Drug ineffective [Unknown]
  - Anxiety [Unknown]
  - Medication overuse headache [Unknown]
